FAERS Safety Report 17711341 (Version 4)
Quarter: 2020Q3

REPORT INFORMATION
  Report Type: Report from Study
  Country: US (occurrence: US)
  Receive Date: 20200427
  Receipt Date: 20200730
  Transmission Date: 20201102
  Serious: Yes (Other)
  Sender: FDA-Public Use
  Company Number: US-CLOVIS ONCOLOGY-CLO-2020-000381

PATIENT
  Age: 76 Year
  Sex: Female

DRUGS (4)
  1. RUBRACA [Suspect]
     Active Substance: RUCAPARIB CAMSYLATE
     Dosage: 300 MG AM/600 MG PM
     Dates: end: 20200619
  2. RUBRACA [Suspect]
     Active Substance: RUCAPARIB CAMSYLATE
     Dosage: 600 MG, BID
     Route: 048
     Dates: start: 20200226, end: 202004
  3. RUBRACA [Suspect]
     Active Substance: RUCAPARIB CAMSYLATE
     Indication: FALLOPIAN TUBE CANCER
     Dosage: 600 MG, BID
     Route: 048
     Dates: start: 20200227, end: 2020
  4. RUBRACA [Suspect]
     Active Substance: RUCAPARIB CAMSYLATE
     Dosage: 300 MG AM/600 MG PM
     Route: 048
     Dates: start: 20200403, end: 20200416

REACTIONS (19)
  - Muscle spasms [Unknown]
  - Abdominal distension [Recovering/Resolving]
  - Drug ineffective [Unknown]
  - Renal impairment [Unknown]
  - Platelet count decreased [Recovering/Resolving]
  - Dry throat [Unknown]
  - Toxicity to various agents [Unknown]
  - Peripheral swelling [Unknown]
  - Taste disorder [Recovering/Resolving]
  - Fatigue [Unknown]
  - Malignant neoplasm progression [Unknown]
  - Chest pain [Unknown]
  - Dry mouth [Unknown]
  - Renal function test abnormal [Unknown]
  - Blood count abnormal [Recovering/Resolving]
  - Decreased appetite [Unknown]
  - Abdominal discomfort [Unknown]
  - Dyspnoea exertional [Recovering/Resolving]
  - Eructation [Recovering/Resolving]

NARRATIVE: CASE EVENT DATE: 2020
